FAERS Safety Report 6467526-0 (Version None)
Quarter: 2009Q4

REPORT INFORMATION
  Report Type: 
  Country: None (occurrence: None)
  Receive Date: 20091130
  Receipt Date: 20091113
  Transmission Date: 20100525
  Serious: Yes (Death, Life-Threatening)
  Sender: FDA-Public Use
  Company Number: 2009-04522

PATIENT
  Age: 50 Year
  Sex: Female
  Weight: 70.7 kg

DRUGS (3)
  1. VELCADE [Suspect]
     Indication: MULTIPLE MYELOMA
     Dosage: 1.3 MG/M2, INTRAVENOUS
     Route: 042
     Dates: start: 20090915, end: 20091016
  2. DEXAMETHASONE TAB [Concomitant]
  3. EFFEXOR [Concomitant]

REACTIONS (1)
  - LOSS OF CONSCIOUSNESS [None]
